FAERS Safety Report 20255701 (Version 1)
Quarter: 2021Q4

REPORT INFORMATION
  Report Type: Spontaneous
  Country: CN (occurrence: CN)
  Receive Date: 20211230
  Receipt Date: 20211230
  Transmission Date: 20220303
  Serious: Yes (Other)
  Sender: FDA-Public Use
  Company Number: CN-PFIZER INC-2021247216

PATIENT
  Age: 41 Year
  Sex: Female
  Weight: 50 kg

DRUGS (3)
  1. ENOXAPARIN SODIUM [Suspect]
     Active Substance: ENOXAPARIN SODIUM
     Indication: Thrombosis
     Dosage: 4000 IU, BID (4000 IU, 2X/DAY)
     Route: 058
     Dates: start: 20210219, end: 20210226
  2. HYDROXYCHLOROQUINE SULFATE [Suspect]
     Active Substance: HYDROXYCHLOROQUINE SULFATE
     Indication: Systemic lupus erythematosus
     Dosage: 0.1 G, BID (0.1 G, 2X/DAY)
     Route: 048
     Dates: start: 20210222, end: 20210226
  3. METHYLPREDNISOLONE [Suspect]
     Active Substance: METHYLPREDNISOLONE
     Indication: Systemic lupus erythematosus
     Dosage: 12 MG, QD (12 MG, 1X/DAY)
     Route: 048
     Dates: start: 20210222, end: 20210226

REACTIONS (6)
  - Total bile acids increased [Recovering/Resolving]
  - Liver injury [Recovering/Resolving]
  - Aspartate aminotransferase increased [Recovering/Resolving]
  - Gamma-glutamyltransferase increased [Recovering/Resolving]
  - Blood alkaline phosphatase increased [Recovering/Resolving]
  - Alanine aminotransferase increased [Recovering/Resolving]

NARRATIVE: CASE EVENT DATE: 20210223
